FAERS Safety Report 9088381 (Version 1)
Quarter: 2013Q1

REPORT INFORMATION
  Report Type: Report from Study
  Country: US (occurrence: US)
  Receive Date: 20130130
  Receipt Date: 20130130
  Transmission Date: 20140127
  Serious: No
  Sender: FDA-Public Use
  Company Number: US-ABBOTT-12P-163-0954040-00

PATIENT
  Age: 56 Year
  Sex: Male

DRUGS (18)
  1. HUMIRA 40 MG/0.8 ML PEN [Suspect]
     Indication: CROHN^S DISEASE
     Dosage: DAY 1
     Route: 058
     Dates: start: 20120705
  2. HUMIRA 40 MG/0.8 ML PEN [Suspect]
     Dosage: DAY 2
  3. HUMIRA 40 MG/0.8 ML PEN [Suspect]
  4. GEMFIBROZIL [Concomitant]
     Indication: BLOOD TRIGLYCERIDES
  5. MORPHINE [Concomitant]
     Indication: PRODUCT USED FOR UNKNOWN INDICATION
     Dosage: EXTENDED RELASE IN THE DAYTIME
  6. MORPHINE [Concomitant]
     Dosage: EXTENDED RELASE AT NIGHT TIME
  7. DIAZEPAM [Concomitant]
     Indication: PRODUCT USED FOR UNKNOWN INDICATION
     Dosage: AT BEDTIME
  8. B-12 [Concomitant]
     Indication: PRODUCT USED FOR UNKNOWN INDICATION
  9. DIGOXIN [Concomitant]
     Indication: PRODUCT USED FOR UNKNOWN INDICATION
     Dosage: 1.5 PER DAY UP TO 2 FULL TABS DAILY AS NEEDED
  10. ASPIRIN [Concomitant]
     Indication: CHEST PAIN
     Dosage: 325MG DAILY TO TAKE WITH NITRO AS NEEDED
  11. NITRO [Concomitant]
     Indication: CHEST PAIN
  12. MORPHINE SULFATE [Concomitant]
     Indication: PRODUCT USED FOR UNKNOWN INDICATION
     Dosage: 20MG/1ML
  13. BENADRYL [Concomitant]
     Indication: PRODUCT USED FOR UNKNOWN INDICATION
     Dosage: 4 EVERY DAY
  14. FISH OIL [Concomitant]
     Indication: PRODUCT USED FOR UNKNOWN INDICATION
     Dosage: 4 EVERY DAY
  15. MULTIVITAMIN [Concomitant]
     Indication: PRODUCT USED FOR UNKNOWN INDICATION
     Dosage: EVERY DAY
  16. FOLIC ACID [Concomitant]
     Indication: PRODUCT USED FOR UNKNOWN INDICATION
  17. GABAPENTIN [Concomitant]
     Indication: PRODUCT USED FOR UNKNOWN INDICATION
     Dosage: 7 TABLETS PER DAY
  18. OMEPRAZOLE [Concomitant]
     Indication: GASTRIC DISORDER
     Dosage: 1-2 DAILY

REACTIONS (2)
  - Fatigue [Not Recovered/Not Resolved]
  - Feeling abnormal [Not Recovered/Not Resolved]
